FAERS Safety Report 17487607 (Version 1)
Quarter: 2020Q1

REPORT INFORMATION
  Report Type: Spontaneous
  Country: US (occurrence: US)
  Receive Date: 20200303
  Receipt Date: 20200303
  Transmission Date: 20200409
  Serious: No
  Sender: FDA-Public Use
  Company Number: US-ALLERGAN-1916031US

PATIENT
  Sex: Female

DRUGS (6)
  1. LYRICA [Concomitant]
     Active Substance: PREGABALIN
     Indication: NEUROPATHY PERIPHERAL
     Dosage: 150 MG, TID
  2. LYRICA [Concomitant]
     Active Substance: PREGABALIN
     Dosage: 75 UNK
  3. LYRICA [Concomitant]
     Active Substance: PREGABALIN
     Dosage: 100 UNK
  4. LYRICA [Concomitant]
     Active Substance: PREGABALIN
     Dosage: 50 UNK
  5. LYRICA [Concomitant]
     Active Substance: PREGABALIN
     Dosage: 25 MG
  6. SAVELLA [Suspect]
     Active Substance: MILNACIPRAN HYDROCHLORIDE
     Indication: PRODUCT USED FOR UNKNOWN INDICATION
     Route: 065

REACTIONS (1)
  - Drug ineffective [Unknown]
